FAERS Safety Report 7725757-3 (Version None)
Quarter: 2011Q3

REPORT INFORMATION
  Report Type: 
  Country: None (occurrence: None)
  Receive Date: 20110831
  Receipt Date: 20110822
  Transmission Date: 20111222
  Serious: Yes (Hospitalization, Other)
  Sender: FDA-Public Use
  Company Number: 1713747-2011-00011

PATIENT
  Sex: Female
  Weight: 86 kg

DRUGS (1)
  1. DELFLEX W/ DEXTROSE 1.5% [Suspect]
     Indication: RENAL FAILURE CHRONIC
     Dosage: 033
     Dates: start: 20101222, end: 20110502

REACTIONS (1)
  - INFECTIOUS PERITONITIS [None]
